FAERS Safety Report 11866870 (Version 2)
Quarter: 2016Q1

REPORT INFORMATION
  Report Type: Report from Study
  Country: DE (occurrence: DE)
  Receive Date: 20151224
  Receipt Date: 20160113
  Transmission Date: 20160526
  Serious: Yes (Hospitalization)
  Sender: FDA-Public Use
  Company Number: PHHO2015DE021102

PATIENT
  Sex: Female
  Weight: 117 kg

DRUGS (3)
  1. AIN457 [Suspect]
     Active Substance: SECUKINUMAB
     Indication: PSORIATIC ARTHROPATHY
     Dosage: 150 MG, EVERY 4 WEEKS
     Route: 058
     Dates: start: 20121004, end: 20151022
  2. RAMIPRIL. [Concomitant]
     Active Substance: RAMIPRIL
     Indication: HYPERTENSION
     Route: 065
  3. AIN457 [Suspect]
     Active Substance: SECUKINUMAB
     Indication: PSORIATIC ARTHROPATHY
     Dosage: 150 MG, UNK
     Route: 058
     Dates: start: 20120418, end: 20120906

REACTIONS (2)
  - Cellulitis [Recovering/Resolving]
  - Impaired healing [Recovered/Resolved]

NARRATIVE: CASE EVENT DATE: 20151026
